FAERS Safety Report 5196412-1 (Version None)
Quarter: 2006Q4

REPORT INFORMATION
  Report Type: 
  Country: None (occurrence: None)
  Receive Date: 20061222
  Receipt Date: 20061213
  Transmission Date: 20070319
  Serious: Yes (Hospitalization)
  Sender: FDA-Public Use
  Company Number: 2006SP008370

PATIENT
  Age: 37 Year
  Sex: Female
  Weight: 70 kg

DRUGS (3)
  1. BETAMETHASONE [Suspect]
     Indication: SINUSITIS
     Dosage: 2 DF QD PO
     Route: 048
     Dates: start: 20061011, end: 20061015
  2. AERIUS (DESLORATADINE) (DESLORATADINE) [Suspect]
     Indication: SINUSITIS
     Dosage: 5 MG QD PO
     Route: 048
     Dates: start: 20061011, end: 20061015
  3. KETEK [Suspect]
     Indication: SINUSITIS
     Dosage: 2 DF QD PO
     Route: 048
     Dates: start: 20061011, end: 20061015

REACTIONS (7)
  - AGEUSIA [None]
  - ANOSMIA [None]
  - ASTHENIA [None]
  - ERYTHEMA [None]
  - HYPOAESTHESIA [None]
  - MALAISE [None]
  - OEDEMA [None]
